FAERS Safety Report 4428595-2 (Version None)
Quarter: 2004Q3

REPORT INFORMATION
  Report Type: 
  Country: None (occurrence: None)
  Receive Date: 20040803
  Receipt Date: 20040719
  Transmission Date: 20050211
  Serious: Yes (Death)
  Sender: FDA-Public Use
  Company Number: 238196

PATIENT
  Sex: Male

DRUGS (1)
  1. NOVOSEVEN [Suspect]
     Indication: SUBDURAL HAEMATOMA
     Dosage: 4800 UG, SINGLE, INTRAVENOUS
     Route: 042

REACTIONS (4)
  - DISEASE PROGRESSION [None]
  - DRUG INEFFECTIVE FOR UNAPPROVED INDICATION [None]
  - PUPIL FIXED [None]
  - SUBDURAL HAEMATOMA [None]
